FAERS Safety Report 12958498 (Version 1)
Quarter: 2016Q4

REPORT INFORMATION
  Report Type: Spontaneous
  Country: IT (occurrence: IT)
  Receive Date: 20161121
  Receipt Date: 20161121
  Transmission Date: 20170207
  Serious: Yes (Other)
  Sender: FDA-Public Use
  Company Number: IT-ROCHE-1856869

PATIENT
  Age: 51 Year
  Sex: Female
  Weight: 97 kg

DRUGS (1)
  1. HERCEPTIN [Suspect]
     Active Substance: TRASTUZUMAB
     Indication: BREAST CANCER
     Dosage: 6 ML - 1 VIAL
     Route: 058
     Dates: start: 20160407

REACTIONS (3)
  - Erythema [Recovered/Resolved]
  - Pain in extremity [Recovered/Resolved]
  - Pyrexia [Recovered/Resolved]

NARRATIVE: CASE EVENT DATE: 20161111
